FAERS Safety Report 24332404 (Version 2)
Quarter: 2025Q1

REPORT INFORMATION
  Report Type: Spontaneous
  Country: GB (occurrence: GB)
  Receive Date: 20240918
  Receipt Date: 20250328
  Transmission Date: 20250408
  Serious: Yes (Other)
  Sender: LEO PHARM
  Company Number: None

PATIENT
  Age: 61 Year
  Sex: Female
  Weight: 77 kg

DRUGS (8)
  1. PROTOPIC [Suspect]
     Active Substance: TACROLIMUS
     Indication: Product used for unknown indication
     Dosage: 0.1%
  2. PROTOPIC [Suspect]
     Active Substance: TACROLIMUS
     Indication: Product used for unknown indication
     Dosage: MAINTENANCE DOSE,0.1%
  3. CLOBETASONE BUTYRATE [Suspect]
     Active Substance: CLOBETASONE BUTYRATE
     Indication: Product used for unknown indication
  4. HYDROCORTISONE [Suspect]
     Active Substance: HYDROCORTISONE
     Indication: Product used for unknown indication
  5. CLOBETASOL [Suspect]
     Active Substance: CLOBETASOL
     Indication: Product used for unknown indication
  6. CLOBETASOL PROPIONATE [Suspect]
     Active Substance: CLOBETASOL PROPIONATE
     Indication: Product used for unknown indication
  7. EUMOVATE [Suspect]
     Active Substance: CLOBETASONE BUTYRATE
     Indication: Product used for unknown indication
  8. BETAMETHASONE\FUSIDIC ACID [Suspect]
     Active Substance: BETAMETHASONE\FUSIDIC ACID
     Indication: Product used for unknown indication
     Dates: end: 20240625

REACTIONS (10)
  - Neuralgia [Not Recovered/Not Resolved]
  - Rash [Unknown]
  - Condition aggravated [Unknown]
  - Urticaria [Unknown]
  - Topical steroid withdrawal reaction [Unknown]
  - Pruritus [Not Recovered/Not Resolved]
  - Skin atrophy [Unknown]
  - Burning sensation [Unknown]
  - Insomnia [Not Recovered/Not Resolved]
  - Skin weeping [Unknown]

NARRATIVE: CASE EVENT DATE: 20211021
